FAERS Safety Report 25686280 (Version 1)
Quarter: 2025Q3

REPORT INFORMATION
  Report Type: Report from Study
  Country: GB (occurrence: GB)
  Receive Date: 20250815
  Receipt Date: 20250815
  Transmission Date: 20251020
  Serious: Yes (Other)
  Sender: EISAI
  Company Number: GB-Eisai-EC-2025-194875

PATIENT
  Age: 16 Year
  Sex: Female
  Weight: 40.2 kg

DRUGS (5)
  1. LENVATINIB [Suspect]
     Active Substance: LENVATINIB
     Indication: Ewing^s sarcoma
     Dates: start: 20241213, end: 2025
  2. LENVATINIB [Suspect]
     Active Substance: LENVATINIB
     Dates: start: 2025, end: 20250807
  3. IFOSFAMIDE [Suspect]
     Active Substance: IFOSFAMIDE
     Indication: Ewing^s sarcoma
     Dates: start: 20241213, end: 20250228
  4. LEVOTHYROXINE [Concomitant]
     Active Substance: LEVOTHYROXINE
     Indication: Hypothyroidism
     Dates: start: 20250306
  5. NORETHINDRONE [Concomitant]
     Active Substance: NORETHINDRONE
     Indication: Menstrual cycle management
     Dates: start: 20250103

REACTIONS (1)
  - Dyspnoea [Not Recovered/Not Resolved]

NARRATIVE: CASE EVENT DATE: 20250416
